FAERS Safety Report 7620063-X (Version None)
Quarter: 2011Q3

REPORT INFORMATION
  Report Type: 
  Country: None (occurrence: None)
  Receive Date: 20110719
  Receipt Date: 20110712
  Transmission Date: 20111222
  Serious: No
  Sender: FDA-Public Use
  Company Number: US-PFIZER INC-2011139538

PATIENT
  Sex: Male
  Weight: 71 kg

DRUGS (5)
  1. POTASSIUM [Concomitant]
     Indication: CARDIAC DISORDER
     Dosage: 20 MEQ, UNK
  2. ZETIA [Concomitant]
     Indication: CARDIAC DISORDER
     Dosage: 10 MG, ALTERNATE DAY
  3. FUROSEMIDE [Concomitant]
     Indication: CARDIAC DISORDER
     Dosage: 40 MG, UNK
  4. PLAVIX [Concomitant]
     Indication: CARDIAC DISORDER
     Dosage: 75 MG, UNK
  5. NIFEDIPINE [Suspect]
     Indication: BLOOD PRESSURE ABNORMAL
     Dosage: 30 MG, 1X/DAY
     Route: 048
     Dates: start: 20000101

REACTIONS (1)
  - MEDICATION RESIDUE [None]
